FAERS Safety Report 19535009 (Version 2)
Quarter: 2021Q3

REPORT INFORMATION
  Report Type: Spontaneous
  Country: US (occurrence: US)
  Receive Date: 20210714
  Receipt Date: 20210719
  Transmission Date: 20211014
  Serious: Yes (Other)
  Sender: FDA-Public Use
  Company Number: US-AMGEN-USASP2021105282

PATIENT
  Sex: Female

DRUGS (1)
  1. REPATHA [Suspect]
     Active Substance: EVOLOCUMAB
     Indication: ARTERIAL OCCLUSIVE DISEASE
     Dosage: UNK
     Route: 065
     Dates: start: 202101

REACTIONS (3)
  - Type 1 diabetes mellitus [Unknown]
  - Insomnia [Unknown]
  - Gastrointestinal disorder [Unknown]
